FAERS Safety Report 15150088 (Version 1)
Quarter: 2018Q3

REPORT INFORMATION
  Report Type: Spontaneous
  Country: ZA (occurrence: ZA)
  Receive Date: 20180716
  Receipt Date: 20180716
  Transmission Date: 20181010
  Serious: Yes (Hospitalization)
  Sender: FDA-Public Use
  Company Number: ZA-PFIZER INC-2018283012

PATIENT
  Age: 60 Year
  Sex: Female

DRUGS (4)
  1. GEODON [Suspect]
     Active Substance: ZIPRASIDONE HYDROCHLORIDE\ZIPRASIDONE MESYLATE
     Dosage: 60 MG, UNK
  2. GEODON [Suspect]
     Active Substance: ZIPRASIDONE HYDROCHLORIDE\ZIPRASIDONE MESYLATE
     Dosage: 80 MG, UNK
  3. EPITEC [Suspect]
     Active Substance: LAMOTRIGINE
     Dosage: 100 MG, UNK
  4. EPITEC [Suspect]
     Active Substance: LAMOTRIGINE
     Dosage: 200 MG, UNK

REACTIONS (1)
  - Back disorder [Unknown]
